FAERS Safety Report 5124476-X (Version None)
Quarter: 2006Q4

REPORT INFORMATION
  Report Type: 
  Country: None (occurrence: None)
  Receive Date: 20061006
  Receipt Date: 20060928
  Transmission Date: 20070319
  Serious: Yes (Hospitalization)
  Sender: FDA-Public Use
  Company Number: B0440742A

PATIENT
  Age: 65 Year
  Sex: Female

DRUGS (4)
  1. AUGMENTIN [Suspect]
     Indication: PAIN PROPHYLAXIS
     Dosage: 1 GRAM (S)/THREE TIMES PER DAY/INTRAVENOUS
     Route: 042
     Dates: start: 20051026, end: 20051028
  2. ACETAMINOPHEN [Suspect]
     Indication: PAIN PROPHYLAXIS
     Dosage: 1 GRAM(S)/FOUR TIMES PER DAY/INTRAVENOUS
     Route: 042
     Dates: start: 20051026, end: 20051028
  3. HYDROXYZINE HYDROCHLORIDE [Concomitant]
  4. LEVOFLOXACIN [Concomitant]

REACTIONS (1)
  - ACUTE GENERALISED EXANTHEMATOUS PUSTULOSIS [None]
